FAERS Safety Report 5501421-6 (Version None)
Quarter: 2007Q4

REPORT INFORMATION
  Report Type: 
  Country: None (occurrence: None)
  Receive Date: 20071026
  Receipt Date: 20071026
  Transmission Date: 20080405
  Serious: No
  Sender: FDA-Public Use
  Company Number: None

PATIENT
  Age: 60 Year
  Sex: Female
  Weight: 97.977 kg

DRUGS (1)
  1. METFORMIN HCL [Suspect]
     Dosage: 1 PO QD
     Route: 048

REACTIONS (1)
  - GASTROINTESTINAL DISORDER [None]
